FAERS Safety Report 4592014-6 (Version None)
Quarter: 2005Q1

REPORT INFORMATION
  Report Type: 
  Country: None (occurrence: None)
  Receive Date: 20050125
  Receipt Date: 20041105
  Transmission Date: 20050727
  Serious: No
  Sender: FDA-Public Use
  Company Number: USA040773088

PATIENT
  Age: 50 Year
  Sex: Male
  Weight: 98 kg

DRUGS (6)
  1. FORTEO [Suspect]
     Dosage: 20 UG/1 DAY
     Dates: start: 20040701
  2. PROTAMINE SULFATE [Concomitant]
  3. MICARDIS HCT [Concomitant]
  4. ZOLOFT [Concomitant]
  5. OXYCODONE HCL [Concomitant]
  6. ALLEGRA [Concomitant]

REACTIONS (3)
  - DIZZINESS [None]
  - HYPERHIDROSIS [None]
  - HYPOTENSION [None]
